FAERS Safety Report 5809549-8 (Version None)
Quarter: 2008Q3

REPORT INFORMATION
  Report Type: 
  Country: None (occurrence: None)
  Receive Date: 20080715
  Receipt Date: 20080307
  Transmission Date: 20090109
  Serious: Yes (Death, Life-Threatening)
  Sender: FDA-Public Use
  Company Number: KR-BAYER-200815761GPV

PATIENT

DRUGS (8)
  1. ALEMTUZUMAB [Suspect]
     Indication: BONE MARROW FAILURE
     Dosage: TOTAL DAILY DOSE: 10 MG
  2. ALEMTUZUMAB [Suspect]
     Dosage: TOTAL DAILY DOSE: 20 MG
  3. ALEMTUZUMAB [Suspect]
     Dosage: TOTAL DAILY DOSE: 30 MG
  4. ALEMTUZUMAB [Suspect]
     Dosage: AS USED: 30 MG
  5. CYCLOSPORINE [Suspect]
     Indication: BONE MARROW FAILURE
  6. CIPROFLOXACIN [Concomitant]
     Indication: PROPHYLAXIS
  7. ACYCLOVIR [Concomitant]
     Indication: PROPHYLAXIS
  8. BACTRIM [Concomitant]
     Indication: PROPHYLAXIS

REACTIONS (6)
  - ALANINE AMINOTRANSFERASE INCREASED [None]
  - ASPARTATE AMINOTRANSFERASE INCREASED [None]
  - HYPERBILIRUBINAEMIA [None]
  - INFECTION [None]
  - PYREXIA [None]
  - RASH [None]
